FAERS Safety Report 13343928 (Version 3)
Quarter: 2017Q3

REPORT INFORMATION
  Report Type: Spontaneous
  Country: US (occurrence: US)
  Receive Date: 20170316
  Receipt Date: 20170707
  Transmission Date: 20171127
  Serious: Yes (Hospitalization)
  Sender: FDA-Public Use
  Company Number: US-ACTELION-A-NJ2017-151243

PATIENT
  Age: 54 Year
  Sex: Male
  Weight: 84.35 kg

DRUGS (12)
  1. ATORVASTATIN [Concomitant]
     Active Substance: ATORVASTATIN
  2. ASA [Concomitant]
     Active Substance: ASPIRIN
  3. ALLOPURINOL. [Concomitant]
     Active Substance: ALLOPURINOL
  4. RENVELA [Concomitant]
     Active Substance: SEVELAMER CARBONATE
  5. CLINISOL [Concomitant]
     Active Substance: ALANINE\ARGININE\ASPARTIC ACID\GLUTAMIC ACID\GLYCINE\HISTIDINE\ISOLEUCINE\LEUCINE\LYSINE\METHIONINE\PHENYLALANINE\PROLINE\SERINE\THREONINE\TRYPTOPHAN\TYROSINE\VALINE
  6. MIDODRINE [Concomitant]
     Active Substance: MIDODRINE
  7. VELETRI [Suspect]
     Active Substance: EPOPROSTENOL
     Dosage: 19 NG/KG, PER MIN
     Route: 042
  8. ADCIRCA [Concomitant]
     Active Substance: TADALAFIL
     Dosage: 40 MG, QD
  9. VELETRI [Suspect]
     Active Substance: EPOPROSTENOL
     Dosage: UNK
     Route: 042
     Dates: start: 20150610
  10. VELETRI [Suspect]
     Active Substance: EPOPROSTENOL
     Indication: PULMONARY ARTERIAL HYPERTENSION
     Dosage: 17 NG/KG, PER MIN
     Route: 042
  11. DIGOXIN. [Concomitant]
     Active Substance: DIGOXIN
  12. SENSIPAR [Concomitant]
     Active Substance: CINACALCET HYDROCHLORIDE

REACTIONS (12)
  - Device related infection [Recovered/Resolved]
  - Tremor [Recovered/Resolved]
  - Pyrexia [Recovered/Resolved]
  - Bacteraemia [Recovered/Resolved]
  - Catheter management [Unknown]
  - Pericardial effusion [Unknown]
  - Myocardial infarction [Unknown]
  - Chills [Recovered/Resolved]
  - Catheter culture positive [Recovered/Resolved]
  - Dialysis [Unknown]
  - Blood culture positive [Recovered/Resolved]
  - Hypotension [Unknown]

NARRATIVE: CASE EVENT DATE: 20170317
